FAERS Safety Report 21083407 (Version 1)
Quarter: 2022Q3

REPORT INFORMATION
  Report Type: Spontaneous
  Country: US (occurrence: None)
  Receive Date: 20220714
  Receipt Date: 20220714
  Transmission Date: 20221027
  Serious: No
  Sender: FDA-Public Use
  Company Number: None

PATIENT
  Sex: Female

DRUGS (1)
  1. VUMERITY [Suspect]
     Active Substance: DIROXIMEL FUMARATE
     Indication: Multiple sclerosis
     Dosage: 231MG TWICE DAILY BY MOUTH?
     Route: 048
     Dates: start: 20220502

REACTIONS (5)
  - Multiple sclerosis [None]
  - Drug ineffective [None]
  - Gait disturbance [None]
  - Speech disorder [None]
  - Bradyphrenia [None]
